FAERS Safety Report 8310299 (Version 2)
Quarter: 2012Q4

REPORT INFORMATION
  Report Type: 
  Country: VE (occurrence: VE)
  Receive Date: 20111223
  Receipt Date: 20120921
  Transmission Date: 20130627
  Serious: Yes (Other)
  Sender: FDA-Public Use
  Company Number: VE-ROCHE-1023766

PATIENT
  Sex: Female

DRUGS (3)
  1. XOLAIR [Suspect]
     Indication: RESPIRATORY TRACT INFECTION
     Route: 058
     Dates: start: 201012, end: 201109
  2. FORADIL [Suspect]
     Indication: PNEUMONIA
     Route: 048
     Dates: start: 201012, end: 201111
  3. MIFLONIDE [Suspect]
     Indication: PNEUMONIA
     Route: 048
     Dates: start: 201012, end: 201111

REACTIONS (1)
  - Urinary tract infection [Recovered/Resolved]
